FAERS Safety Report 16387792 (Version 3)
Quarter: 2019Q3

REPORT INFORMATION
  Report Type: Spontaneous
  Country: US (occurrence: US)
  Receive Date: 20190604
  Receipt Date: 20190705
  Transmission Date: 20191004
  Serious: Yes (Hospitalization, Other)
  Sender: FDA-Public Use
  Company Number: US-ELI_LILLY_AND_COMPANY-US201905014044

PATIENT
  Sex: Female

DRUGS (7)
  1. HUMALOG [Suspect]
     Active Substance: INSULIN LISPRO
     Indication: GESTATIONAL DIABETES
     Dosage: UNK UNK, PRN
     Route: 058
  2. HUMULIN R [Suspect]
     Active Substance: INSULIN HUMAN
     Indication: LATENT AUTOIMMUNE DIABETES IN ADULTS
     Dosage: UNK UNK, UNKNOWN
     Route: 058
  3. LEVEMIR [Concomitant]
     Active Substance: INSULIN DETEMIR
     Dosage: 13 U, BID (MORNING AND EVENING)
  4. HUMULIN R [Suspect]
     Active Substance: INSULIN HUMAN
     Indication: GESTATIONAL DIABETES
  5. HUMALOG [Suspect]
     Active Substance: INSULIN LISPRO
     Indication: LATENT AUTOIMMUNE DIABETES IN ADULTS
     Dosage: UNK UNK, PRN
     Route: 058
  6. LEVEMIR [Concomitant]
     Active Substance: INSULIN DETEMIR
     Indication: LATENT AUTOIMMUNE DIABETES IN ADULTS
     Dosage: 12 U, UNKNOWN
  7. HUMALOG [Suspect]
     Active Substance: INSULIN LISPRO
     Dosage: UNK UNK, PRN
     Route: 058

REACTIONS (14)
  - Gait inability [Not Recovered/Not Resolved]
  - Arthropathy [Not Recovered/Not Resolved]
  - Blood glucose decreased [Recovered/Resolved]
  - Fall [Not Recovered/Not Resolved]
  - Maternal exposure during pregnancy [Recovered/Resolved]
  - Meniscus injury [Not Recovered/Not Resolved]
  - Bone pain [Not Recovered/Not Resolved]
  - Allergy to metals [Not Recovered/Not Resolved]
  - Blood glucose decreased [Unknown]
  - Blood glucose decreased [Recovered/Resolved]
  - Loss of consciousness [Recovered/Resolved]
  - Joint injury [Not Recovered/Not Resolved]
  - Atrial fibrillation [Not Recovered/Not Resolved]
  - Blood glucose increased [Recovered/Resolved]

NARRATIVE: CASE EVENT DATE: 1991
